FAERS Safety Report 8478909-1 (Version None)
Quarter: 2012Q2

REPORT INFORMATION
  Report Type: 
  Country: None (occurrence: None)
  Receive Date: 20120629
  Receipt Date: 20120618
  Transmission Date: 20120825
  Serious: Yes (Other)
  Sender: FDA-Public Use
  Company Number: US-PERRIGO-12US005330

PATIENT
  Age: 20 Year
  Sex: Male

DRUGS (1)
  1. DIPHENHYDRAMINE HYDROCHLORIDE [Suspect]
     Indication: PRODUCT USED FOR UNKNOWN INDICATION
     Dosage: 25 MG, SINGLE
     Route: 048
     Dates: start: 20120505, end: 20120505

REACTIONS (2)
  - URTICARIA [None]
  - HYPERSENSITIVITY [None]
